FAERS Safety Report 5911962-5 (Version None)
Quarter: 2008Q4

REPORT INFORMATION
  Report Type: 
  Country: None (occurrence: None)
  Receive Date: 20081008
  Receipt Date: 20081001
  Transmission Date: 20090506
  Serious: Yes (Other)
  Sender: FDA-Public Use
  Company Number: PHHY2008DE22263

PATIENT

DRUGS (1)
  1. TEGRETOL-XR [Suspect]

REACTIONS (1)
  - CONVULSION [None]
